FAERS Safety Report 23477600 (Version 1)
Quarter: 2024Q1

REPORT INFORMATION
  Report Type: Report from Study
  Country: US (occurrence: US)
  Receive Date: 20240204
  Receipt Date: 20240204
  Transmission Date: 20240410
  Serious: No
  Sender: FDA-Public Use
  Company Number: US-EXELIXIS-CABO-23067274

PATIENT
  Sex: Male

DRUGS (11)
  1. CABOMETYX [Suspect]
     Active Substance: CABOZANTINIB S-MALATE
     Indication: Adrenocortical carcinoma
     Dosage: 60 MG, QD
     Dates: start: 20230729
  2. KEYTRUDA [Suspect]
     Active Substance: PEMBROLIZUMAB
     Indication: Adrenal gland cancer
     Dosage: UNK, Q3WEEKS (21 DAYS)
     Dates: start: 20230729
  3. TESTOSTERONE [Concomitant]
     Active Substance: TESTOSTERONE
  4. HYDROCORTISONE [Concomitant]
     Active Substance: HYDROCORTISONE
  5. SULFAMETHOXAZOLE [Concomitant]
     Active Substance: SULFAMETHOXAZOLE
  6. ALBUTEROL [Concomitant]
     Active Substance: ALBUTEROL
  7. OLANZAPINE [Concomitant]
     Active Substance: OLANZAPINE
  8. FOLIC ACID [Concomitant]
     Active Substance: FOLIC ACID
  9. VITAMIN B12 [Concomitant]
     Active Substance: CYANOCOBALAMIN
  10. PREDNISONE [Concomitant]
     Active Substance: PREDNISONE
  11. IV MEDICATION TO STRENGTHEN BONES [Concomitant]

REACTIONS (2)
  - Pain [Unknown]
  - Off label use [Unknown]
